FAERS Safety Report 12508563 (Version 1)
Quarter: 2016Q2

REPORT INFORMATION
  Report Type: Report from Study
  Country: JP (occurrence: JP)
  Receive Date: 20160629
  Receipt Date: 20160629
  Transmission Date: 20160815
  Serious: Yes (Disabling, Other)
  Sender: FDA-Public Use
  Company Number: JP-PFIZER INC-2014333798

PATIENT
  Age: 74 Year
  Sex: Male
  Weight: 60 kg

DRUGS (15)
  1. VANCOMYCIN [Concomitant]
     Active Substance: VANCOMYCIN
     Indication: DEVICE RELATED INFECTION
     Dosage: 3 G, 1X/DAY
     Route: 042
     Dates: start: 20131109, end: 20131119
  2. HEPARIN SODIUM. [Concomitant]
     Active Substance: HEPARIN SODIUM
     Indication: DEEP VEIN THROMBOSIS
     Dosage: UNK
     Route: 051
     Dates: start: 20131016
  3. NOVASTAN [Suspect]
     Active Substance: ARGATROBAN
     Dosage: 2 ?G/KG, 1 MIN
     Route: 041
     Dates: start: 20131030, end: 20131101
  4. NOVASTAN [Suspect]
     Active Substance: ARGATROBAN
     Dosage: 1.2 ?G/KG, 1 MIN
     Route: 041
     Dates: start: 20131118, end: 20131121
  5. UROKINASE [Concomitant]
     Active Substance: UROKINASE
     Dosage: 960,000 UNITS/DAY ON THE 16TH DAY OF THE ILLNESS
     Route: 042
  6. NOVASTAN [Suspect]
     Active Substance: ARGATROBAN
     Dosage: 2 ?G/KG,1 MIN
     Route: 041
     Dates: start: 20131026, end: 20131029
  7. UROKINASE [Concomitant]
     Active Substance: UROKINASE
     Dosage: 240 KIU, 1X/DAY
     Route: 042
     Dates: start: 20131101, end: 20131113
  8. NOVASTAN [Suspect]
     Active Substance: ARGATROBAN
     Indication: HEPARIN-INDUCED THROMBOCYTOPENIA
     Dosage: 3 ?G/KG, 1 MIN
     Route: 041
     Dates: start: 20131024, end: 20131026
  9. NOVASTAN [Suspect]
     Active Substance: ARGATROBAN
     Dosage: 0.5 ?G/KG, 1 MIN
     Route: 041
     Dates: start: 20131106, end: 20131113
  10. WARFARIN [Concomitant]
     Active Substance: WARFARIN
     Dosage: 1 MG, 1X/DAY
     Route: 048
     Dates: start: 20131120, end: 20140331
  11. NOVASTAN [Suspect]
     Active Substance: ARGATROBAN
     Dosage: 0.8 ?G/KG, 1 MIN
     Route: 041
     Dates: start: 20131113, end: 20131118
  12. NOVASTAN [Suspect]
     Active Substance: ARGATROBAN
     Dosage: 1 ?G/KG, 1 MIN
     Route: 041
     Dates: start: 20131121, end: 20131127
  13. UROKINASE [Concomitant]
     Active Substance: UROKINASE
     Dosage: 240,000 UNITS ON THE 17TH DAY OF THE ILLNESS
     Route: 042
  14. NOVASTAN [Suspect]
     Active Substance: ARGATROBAN
     Dosage: 0.25 ?G/KG, 1 MIN
     Route: 041
     Dates: start: 20131101, end: 20131106
  15. MEROPENEM. [Suspect]
     Active Substance: MEROPENEM
     Indication: DEVICE RELATED INFECTION
     Dosage: 3 G, 1X/DAY
     Route: 042
     Dates: start: 20131030, end: 20131110

REACTIONS (5)
  - Vena cava thrombosis [Recovered/Resolved]
  - Liver disorder [Recovered/Resolved]
  - Condition aggravated [Recovered/Resolved]
  - Haemorrhagic anaemia [Recovering/Resolving]
  - Haemorrhage [Recovered/Resolved]

NARRATIVE: CASE EVENT DATE: 20131028
